FAERS Safety Report 23109584 (Version 1)
Quarter: 2023Q4

REPORT INFORMATION
  Report Type: Spontaneous
  Country: DE (occurrence: DE)
  Receive Date: 20231026
  Receipt Date: 20231026
  Transmission Date: 20240109
  Serious: Yes (Other)
  Sender: FDA-Public Use
  Company Number: DE-002147023-NVSC2022DE204277

PATIENT
  Sex: Female
  Weight: 105 kg

DRUGS (7)
  1. LETROZOLE [Suspect]
     Active Substance: LETROZOLE
     Indication: Breast cancer metastatic
     Dosage: 2.5 MILLIGRAM DAILY;
     Dates: start: 20200507, end: 20220301
  2. LETROZOLE [Suspect]
     Active Substance: LETROZOLE
     Dosage: 2.5 MILLIGRAM DAILY;
     Dates: start: 20220302, end: 20220518
  3. EXEMESTANE [Suspect]
     Active Substance: EXEMESTANE
     Indication: Breast cancer metastatic
     Dosage: 2.5 MILLIGRAM DAILY; 2.5 MG, QD (START DATE: 23 MAR 2022 OR 25 MAR 2023)
  4. KISQALI [Suspect]
     Active Substance: RIBOCICLIB
     Indication: Breast cancer metastatic
     Dosage: 600 MILLIGRAM DAILY; 600 MG, QD (SCHE MA 21 DAYS INTAK E, 7 DAYS PAUSE)
     Dates: start: 20200704, end: 20220301
  5. KISQALI [Suspect]
     Active Substance: RIBOCICLIB
     Dosage: 600 MILLIGRAM DAILY; 600 MG, QD (SCHE MA 21 DAYS INTAK E, 7 DAYS PAUSE)
     Dates: start: 20200605, end: 20200702
  6. KISQALI [Suspect]
     Active Substance: RIBOCICLIB
     Dosage: 600 MILLIGRAM DAILY; 600 MG, QD (SCHE MA 21 DAYS INTAK E, 7 DAYS PAUSE)
     Dates: start: 20200507, end: 20200603
  7. AFINITOR [Suspect]
     Active Substance: EVEROLIMUS
     Indication: Breast cancer metastatic
     Dosage: 7.5 MILLIGRAM DAILY;
     Dates: start: 20220707, end: 20220816

REACTIONS (1)
  - Hyperglycaemia [Recovering/Resolving]

NARRATIVE: CASE EVENT DATE: 20220816
